FAERS Safety Report 17493059 (Version 1)
Quarter: 2020Q1

REPORT INFORMATION
  Report Type: Spontaneous
  Country: US (occurrence: US)
  Receive Date: 20200220
  Receipt Date: 20200220
  Transmission Date: 20200409
  Serious: No
  Sender: FDA-Public Use
  Company Number: None

PATIENT
  Age: 68 Year
  Sex: Male
  Weight: 83 kg

DRUGS (1)
  1. ROSUVASTATIN (ROSUVASTATIN CA 5MG TAB) [Suspect]
     Active Substance: ROSUVASTATIN
     Indication: HYPERLIPIDAEMIA
     Dosage: 1/2 TAB EVERY DAY PO
     Route: 048
     Dates: start: 20190329, end: 20190614

REACTIONS (1)
  - Arthralgia [None]

NARRATIVE: CASE EVENT DATE: 20190614
